FAERS Safety Report 6396681-6 (Version None)
Quarter: 2009Q4

REPORT INFORMATION
  Report Type: 
  Country: None (occurrence: None)
  Receive Date: 20091008
  Receipt Date: 20091008
  Transmission Date: 20100525
  Serious: No
  Sender: FDA-Public Use
  Company Number: None

PATIENT
  Sex: Female
  Weight: 66.82 kg

DRUGS (1)
  1. ZOMETA [Suspect]
     Dosage: 4 MG
     Dates: end: 20090406

REACTIONS (1)
  - OSTEONECROSIS [None]
